FAERS Safety Report 13028418 (Version 1)
Quarter: 2016Q4

REPORT INFORMATION
  Report Type: Spontaneous
  Country: GR (occurrence: GR)
  Receive Date: 20161214
  Receipt Date: 20161214
  Transmission Date: 20170207
  Serious: Yes (Other)
  Sender: FDA-Public Use
  Company Number: GR-BAYER-2016-234288

PATIENT
  Age: 60 Year
  Sex: Male

DRUGS (2)
  1. LEVITRA [Suspect]
     Active Substance: VARDENAFIL HYDROCHLORIDE TRIHYDRATE
     Dosage: 20 MG, PRN
     Route: 048
     Dates: start: 2015
  2. TENORMIN [Concomitant]
     Active Substance: ATENOLOL
     Dosage: 25 MG, QD
     Route: 048

REACTIONS (1)
  - Chloropsia [Recovered/Resolved]

NARRATIVE: CASE EVENT DATE: 20161205
